FAERS Safety Report 21048969 (Version 1)
Quarter: 2022Q3

REPORT INFORMATION
  Report Type: Spontaneous
  Country: US (occurrence: None)
  Receive Date: 20220706
  Receipt Date: 20220706
  Transmission Date: 20221027
  Serious: Yes (Hospitalization)
  Sender: FDA-Public Use
  Company Number: None

PATIENT
  Sex: Male

DRUGS (18)
  1. MYCOPHENOLIC ACID [Suspect]
     Active Substance: MYCOPHENOLIC ACID
     Dosage: FREQUENCY : TWICE A DAY;?
     Route: 048
     Dates: start: 20210223
  2. MYCOPHENOLIC ACID [Suspect]
     Active Substance: MYCOPHENOLIC ACID
     Dosage: FREQUENCY : TWICE A DAY;?
     Route: 048
  3. AMLODIPINE [Concomitant]
     Active Substance: AMLODIPINE BESYLATE
  4. CYCLOBENZAPRINE [Concomitant]
     Active Substance: CYCLOBENZAPRINE
  5. DEPO-MEDROL [Concomitant]
  6. GABAPENTIN [Concomitant]
     Active Substance: GABAPENTIN
  7. GLIPIZIDE [Concomitant]
     Active Substance: GLIPIZIDE
  8. ISOSORBIDE MONONITRATE [Concomitant]
     Active Substance: ISOSORBIDE MONONITRATE
  9. LABETALOL [Concomitant]
     Active Substance: LABETALOL\LABETALOL HYDROCHLORIDE
  10. LANSOPRAZOLE [Concomitant]
     Active Substance: LANSOPRAZOLE
  11. LANTUS SOLOS [Concomitant]
  12. MYCOPHENOLATE MOFETIL [Concomitant]
     Active Substance: MYCOPHENOLATE MOFETIL
  13. PARICALCITOL [Concomitant]
     Active Substance: PARICALCITOL
  14. PEG-3350/KCL SOL/SODIUM [Concomitant]
  15. PREDNISONE [Concomitant]
     Active Substance: PREDNISONE
  16. ROSUVASTATIN [Concomitant]
     Active Substance: ROSUVASTATIN
  17. TACROLIMUS [Concomitant]
     Active Substance: TACROLIMUS
  18. VITAMIN D [Concomitant]
     Active Substance: VITAMIN D NOS

REACTIONS (1)
  - Infection [None]
